FAERS Safety Report 4782710-X (Version None)
Quarter: 2005Q3

REPORT INFORMATION
  Report Type: 
  Country: None (occurrence: None)
  Receive Date: 20050929
  Receipt Date: 20050809
  Transmission Date: 20060218
  Serious: No
  Sender: FDA-Public Use
  Company Number: 414052

PATIENT
  Age: 87 Year
  Sex: Female

DRUGS (1)
  1. COREG [Suspect]
     Dosage: 25MG PER DAY
     Route: 048

REACTIONS (2)
  - MUSCLE SPASMS [None]
  - WALKING AID USER [None]
